FAERS Safety Report 9562063 (Version 1)
Quarter: 2013Q3

REPORT INFORMATION
  Report Type: Spontaneous
  Country: US (occurrence: None)
  Receive Date: 20130830
  Receipt Date: 20130830
  Transmission Date: 20140515
  Serious: Yes (Other)
  Sender: FDA-Public Use
  Company Number: AMAG201203082

PATIENT
  Age: 85 Year
  Sex: Male
  Weight: 68 kg

DRUGS (7)
  1. FERAHEME (FERUMOXYTOL) INJECTION, 510MG [Suspect]
     Indication: IRON DEFICIENCY ANAEMIA
     Route: 042
     Dates: start: 20120807, end: 20120807
  2. SIMVASTATIN [Concomitant]
  3. ENALAPRIL (ENALAPRIL MALEATE) [Concomitant]
  4. INDAPAMIDE [Concomitant]
  5. ROCALTROL (CALCITRIOL) [Concomitant]
  6. HECTOROL (DOXERCALCIFEROL) [Concomitant]
  7. VITAMIN D (COLECALCIFEROL) [Concomitant]

REACTIONS (9)
  - Hypotension [None]
  - Tachycardia [None]
  - Presyncope [None]
  - Flushing [None]
  - Paraesthesia [None]
  - Eye movement disorder [None]
  - Muscle twitching [None]
  - Aphasia [None]
  - Oxygen saturation decreased [None]
